FAERS Safety Report 20078886 (Version 1)
Quarter: 2021Q4

REPORT INFORMATION
  Report Type: Spontaneous
  Country: US (occurrence: US)
  Receive Date: 20211117
  Receipt Date: 20211117
  Transmission Date: 20220304
  Serious: No
  Sender: FDA-Public Use
  Company Number: US-ALLERGAN-2047089US

PATIENT
  Age: 55 Year
  Sex: Male

DRUGS (4)
  1. COMBIGAN [Suspect]
     Active Substance: BRIMONIDINE TARTRATE\TIMOLOL MALEATE
     Indication: Glaucoma
     Dosage: 1 GTT, BID
     Route: 047
     Dates: start: 2020, end: 202008
  2. COMBIGAN [Suspect]
     Active Substance: BRIMONIDINE TARTRATE\TIMOLOL MALEATE
     Dosage: 1 GTT, BID
     Route: 047
     Dates: start: 2020, end: 202008
  3. COMBIGAN [Suspect]
     Active Substance: BRIMONIDINE TARTRATE\TIMOLOL MALEATE
     Dosage: 1 UNK
     Route: 047
     Dates: start: 201906
  4. LATANOPROST [Concomitant]
     Active Substance: LATANOPROST
     Indication: Intraocular pressure increased
     Dosage: UNK
     Dates: start: 2019, end: 2020

REACTIONS (5)
  - Eye swelling [Recovered/Resolved]
  - Dry skin [Recovered/Resolved]
  - Eyelid skin dryness [Recovered/Resolved]
  - Pruritus [Recovered/Resolved]
  - Intraocular pressure increased [Unknown]

NARRATIVE: CASE EVENT DATE: 20200101
